FAERS Safety Report 18766565 (Version 2)
Quarter: 2021Q3

REPORT INFORMATION
  Report Type: Spontaneous
  Country: US (occurrence: US)
  Receive Date: 20210121
  Receipt Date: 20210720
  Transmission Date: 20211014
  Serious: Yes (Hospitalization, Other)
  Sender: FDA-Public Use
  Company Number: US-DRREDDYS-USA/USA/21/0131104

PATIENT
  Age: 33 Year
  Sex: Female

DRUGS (8)
  1. ALEMTUZUMAB [Suspect]
     Active Substance: ALEMTUZUMAB
     Dosage: REDUCTION
  2. MYCOPHENOLATE MOFETIL. [Suspect]
     Active Substance: MYCOPHENOLATE MOFETIL
     Indication: IMMUNOSUPPRESSANT DRUG THERAPY
     Dosage: REDUCTION
  3. TACROLIMUS. [Suspect]
     Active Substance: TACROLIMUS
     Indication: IMMUNOSUPPRESSANT DRUG THERAPY
     Dosage: MAINTENANCE
  4. PREDNISONE. [Suspect]
     Active Substance: PREDNISONE
     Dosage: MAINTENANCE
  5. TACROLIMUS. [Suspect]
     Active Substance: TACROLIMUS
     Dosage: REDUCTION
  6. ALEMTUZUMAB [Suspect]
     Active Substance: ALEMTUZUMAB
     Indication: IMMUNOSUPPRESSANT DRUG THERAPY
     Dosage: INDUCTION IMMUNOSUPPRESSION
  7. MYCOPHENOLATE MOFETIL. [Suspect]
     Active Substance: MYCOPHENOLATE MOFETIL
     Dosage: MAINTENANCE
  8. PREDNISONE. [Suspect]
     Active Substance: PREDNISONE
     Indication: IMMUNOSUPPRESSANT DRUG THERAPY
     Dosage: REDUCTION

REACTIONS (8)
  - Tubulointerstitial nephritis [Recovering/Resolving]
  - Condition aggravated [Recovering/Resolving]
  - Polyomavirus viraemia [Recovered/Resolved]
  - Nephropathy [Recovering/Resolving]
  - Kidney fibrosis [Not Recovered/Not Resolved]
  - Renal tubular atrophy [Not Recovered/Not Resolved]
  - Acute kidney injury [Recovering/Resolving]
  - Adenovirus infection [Recovering/Resolving]
